FAERS Safety Report 6673014-9 (Version None)
Quarter: 2010Q2

REPORT INFORMATION
  Report Type: 
  Country: None (occurrence: None)
  Receive Date: 20100408
  Receipt Date: 20100329
  Transmission Date: 20101027
  Serious: Yes (Other)
  Sender: FDA-Public Use
  Company Number: B0645222A

PATIENT
  Age: 39 Year
  Sex: Female

DRUGS (3)
  1. BUPROPION HCL [Suspect]
     Route: 065
  2. TRAMADOL HCL [Suspect]
     Route: 065
  3. NORTRIPTYLINE HCL [Suspect]
     Route: 065

REACTIONS (8)
  - BACK PAIN [None]
  - CONFUSIONAL STATE [None]
  - CONVULSION [None]
  - DRUG INTERACTION [None]
  - DYSKINESIA [None]
  - ELECTROENCEPHALOGRAM ABNORMAL [None]
  - SINUS RHYTHM [None]
  - SPINAL COMPRESSION FRACTURE [None]
